FAERS Safety Report 8578111-9 (Version None)
Quarter: 2012Q3

REPORT INFORMATION
  Report Type: 
  Country: None (occurrence: None)
  Receive Date: 20120808
  Receipt Date: 20120806
  Transmission Date: 20120928
  Serious: Yes (Death, Hospitalization, Other)
  Sender: FDA-Public Use
  Company Number: PHHY2012FR043539

PATIENT
  Sex: Female

DRUGS (2)
  1. IMATINIB MESYLATE [Suspect]
     Route: 048
     Dates: start: 20090801, end: 20110801
  2. IMATINIB MESYLATE [Suspect]
     Indication: CHRONIC MYELOID LEUKAEMIA
     Route: 048
     Dates: end: 20070101

REACTIONS (10)
  - DISORIENTATION [None]
  - VOMITING [None]
  - ILL-DEFINED DISORDER [None]
  - BLOOD PRESSURE SYSTOLIC INCREASED [None]
  - MEMORY IMPAIRMENT [None]
  - MENINGORRHAGIA [None]
  - INTRACRANIAL PRESSURE INCREASED [None]
  - CEREBRAL AMYLOID ANGIOPATHY [None]
  - APHASIA [None]
  - CEREBRAL HAEMATOMA [None]
